FAERS Safety Report 20950987 (Version 2)
Quarter: 2022Q2

REPORT INFORMATION
  Report Type: Spontaneous
  Country: GB (occurrence: GB)
  Receive Date: 20220613
  Receipt Date: 20220616
  Transmission Date: 20220720
  Serious: Yes (Hospitalization, Other)
  Sender: FDA-Public Use
  Company Number: GB-LEO Pharma-343340

PATIENT
  Age: 88 Year
  Sex: Female

DRUGS (4)
  1. DOVONEX [Suspect]
     Active Substance: CALCIPOTRIENE
     Indication: Product used for unknown indication
     Dosage: UNKNOWN
     Route: 061
  2. Conotrane [Concomitant]
     Indication: Product used for unknown indication
     Dosage: UNKNOWN
  3. CALCIPOTRIENE [Concomitant]
     Active Substance: CALCIPOTRIENE
     Indication: Product used for unknown indication
     Dosage: 50MCG/ML SCALP SOLUTION RECEIVED ON 19-MAY-2022
  4. Aqueous [Concomitant]
     Indication: Product used for unknown indication
     Dosage: UNKNOWN

REACTIONS (13)
  - Confusional state [Unknown]
  - Abnormal faeces [Unknown]
  - Haematochezia [Unknown]
  - Muscular weakness [Unknown]
  - Skin haemorrhage [Unknown]
  - Visual impairment [Unknown]
  - Joint swelling [Recovered/Resolved]
  - Rash [Recovered/Resolved]
  - Fatigue [Unknown]
  - Expired product administered [Unknown]
  - Bone pain [Unknown]
  - Dry mouth [Unknown]
  - Dysgeusia [Unknown]
